FAERS Safety Report 8440629-7 (Version None)
Quarter: 2012Q2

REPORT INFORMATION
  Report Type: 
  Country: None (occurrence: None)
  Receive Date: 20120615
  Receipt Date: 20120606
  Transmission Date: 20120825
  Serious: Yes (Disabling)
  Sender: FDA-Public Use
  Company Number: US-MERCK-1205USA00188

PATIENT
  Sex: Female

DRUGS (1)
  1. MAXALT [Suspect]
     Indication: MIGRAINE
     Route: 048
     Dates: start: 20110802

REACTIONS (2)
  - DEPRESSION [None]
  - DISABILITY [None]
